FAERS Safety Report 9130845 (Version 1)
Quarter: 2013Q1

REPORT INFORMATION
  Report Type: Spontaneous
  Country: IT (occurrence: IT)
  Receive Date: 20130301
  Receipt Date: 20130301
  Transmission Date: 20140127
  Serious: Yes (Other)
  Sender: FDA-Public Use
  Company Number: IT-PFIZER INC-2013071360

PATIENT
  Age: 53 Year
  Sex: Male

DRUGS (3)
  1. SUTENT [Suspect]
     Indication: RENAL CANCER
     Dosage: 50 MG DAILY (4/6 WEEKS)
     Route: 048
     Dates: start: 201111
  2. SUTENT [Suspect]
     Dosage: 25 MG, 1X/DAY
     Route: 048
     Dates: start: 2012
  3. SUTENT [Suspect]
     Dosage: 37.5 MG, 1X/DAY
     Route: 048

REACTIONS (19)
  - Acute myocardial infarction [Unknown]
  - Abdominal pain [Unknown]
  - Dyspepsia [Unknown]
  - Flatulence [Unknown]
  - Alopecia [Unknown]
  - Skin discolouration [Unknown]
  - Stomatitis [Unknown]
  - Palmar-plantar erythrodysaesthesia syndrome [Unknown]
  - Hypertriglyceridaemia [Unknown]
  - Neutropenia [Unknown]
  - Aspartate aminotransferase increased [Unknown]
  - Alanine aminotransferase increased [Unknown]
  - Blood creatine phosphokinase increased [Unknown]
  - Hypothyroidism [Unknown]
  - Asthenia [Unknown]
  - Colitis [Unknown]
  - Abdominal distension [Unknown]
  - Disease progression [Unknown]
  - Renal cancer [Unknown]
